FAERS Safety Report 8489732-6 (Version None)
Quarter: 2012Q3

REPORT INFORMATION
  Report Type: 
  Country: None (occurrence: None)
  Receive Date: 20120705
  Receipt Date: 20120628
  Transmission Date: 20120928
  Serious: Yes (Other)
  Sender: FDA-Public Use
  Company Number: GB-GLAXOSMITHKLINE-B0811298A

PATIENT
  Age: 91 Year
  Sex: Female

DRUGS (4)
  1. PHYLLOCONTIN [Suspect]
     Indication: PRODUCT USED FOR UNKNOWN INDICATION
     Dosage: 900MCG PER DAY
     Route: 065
  2. SPIRIVA [Suspect]
     Indication: PRODUCT USED FOR UNKNOWN INDICATION
     Dosage: 2.5MCG TWICE PER DAY
     Route: 055
  3. ALBUTEROL SULFATE AUTOHALER [Suspect]
     Indication: PRODUCT USED FOR UNKNOWN INDICATION
     Dosage: 800MCG PER DAY
     Route: 055
  4. FLUTICASONE PROPIONATE/SALMETEROL [Suspect]
     Indication: PRODUCT USED FOR UNKNOWN INDICATION
     Route: 055

REACTIONS (5)
  - TOXICITY TO VARIOUS AGENTS [None]
  - HYPERALDOSTERONISM [None]
  - HYPOXIA [None]
  - DRUG INEFFECTIVE [None]
  - OEDEMA [None]
